APPROVED DRUG PRODUCT: AVGEMSI
Active Ingredient: GEMCITABINE HYDROCHLORIDE
Strength: EQ 200MG BASE/5.26ML (EQ 38MG BASE/ML)
Dosage Form/Route: SOLUTION;INTRAVENOUS
Application: N219920 | Product #001
Applicant: AVYXA HOLDINGS LLC
Approved: Jun 27, 2025 | RLD: Yes | RS: No | Type: DISCN